FAERS Safety Report 21176771 (Version 1)
Quarter: 2022Q3

REPORT INFORMATION
  Report Type: Spontaneous
  Country: US (occurrence: US)
  Receive Date: 20220805
  Receipt Date: 20220805
  Transmission Date: 20221027
  Serious: Yes (Other)
  Sender: FDA-Public Use
  Company Number: US-TEVA-2022-US-2061701

PATIENT
  Age: 35 Year
  Sex: Female
  Weight: 58.967 kg

DRUGS (5)
  1. PROPRANOLOL HYDROCHLORIDE [Suspect]
     Active Substance: PROPRANOLOL HYDROCHLORIDE
     Indication: Product used for unknown indication
     Dosage: 30 MILLIGRAM DAILY;
     Route: 048
     Dates: start: 20220724
  2. PROPRANOLOL HYDROCHLORIDE [Suspect]
     Active Substance: PROPRANOLOL HYDROCHLORIDE
     Route: 048
  3. PROPRANOLOL HYDROCHLORIDE [Suspect]
     Active Substance: PROPRANOLOL HYDROCHLORIDE
     Dosage: 30 MILLIGRAM DAILY;
     Route: 048
     Dates: start: 2018
  4. BUSPIRONE [Concomitant]
     Active Substance: BUSPIRONE HYDROCHLORIDE
     Indication: Product used for unknown indication
     Dosage: 45 MILLIGRAM DAILY;
     Route: 048
     Dates: start: 2018
  5. ALPRAZOLAM [Concomitant]
     Active Substance: ALPRAZOLAM
     Indication: Product used for unknown indication
     Route: 048
     Dates: start: 2018

REACTIONS (6)
  - Heart rate decreased [Recovering/Resolving]
  - Blood pressure decreased [Recovering/Resolving]
  - Chest discomfort [Not Recovered/Not Resolved]
  - Headache [Not Recovered/Not Resolved]
  - Nausea [Not Recovered/Not Resolved]
  - Product availability issue [Unknown]

NARRATIVE: CASE EVENT DATE: 20220724
